FAERS Safety Report 8211154-3 (Version None)
Quarter: 2012Q1

REPORT INFORMATION
  Report Type: 
  Country: None (occurrence: None)
  Receive Date: 20120315
  Receipt Date: 20120307
  Transmission Date: 20120608
  Serious: Yes (Other)
  Sender: FDA-Public Use
  Company Number: US-UCBSA-052867

PATIENT
  Age: 41 Year
  Sex: Female

DRUGS (4)
  1. VIMPAT [Suspect]
     Indication: CONVULSION
     Dosage: 200MG 1 TAB
     Route: 048
     Dates: start: 20120228
  2. BANZEL [Concomitant]
     Indication: CONVULSION
     Dosage: 200MG 1 TABLET
     Route: 048
     Dates: start: 20111110
  3. KEPPRA [Suspect]
     Indication: CONVULSION
     Dosage: 500MG ; 3 TABLETS
     Route: 048
     Dates: start: 20111110
  4. KEPPRA XR [Suspect]
     Indication: CONVULSION
     Dosage: 500MG, 3 TAB
     Route: 048
     Dates: start: 20120228

REACTIONS (2)
  - INAPPROPRIATE SCHEDULE OF DRUG ADMINISTRATION [None]
  - GRAND MAL CONVULSION [None]
